FAERS Safety Report 8100903-0 (Version None)
Quarter: 2012Q1

REPORT INFORMATION
  Report Type: 
  Country: None (occurrence: None)
  Receive Date: 20120129
  Receipt Date: 20110909
  Transmission Date: 20120608
  Serious: No
  Sender: FDA-Public Use
  Company Number: US-ABBOTT-11P-163-0853211-00

PATIENT
  Sex: Female
  Weight: 62.652 kg

DRUGS (2)
  1. HUMIRA [Suspect]
     Indication: CROHN'S DISEASE
     Route: 058
     Dates: start: 20110825, end: 20110825
  2. HUMIRA [Suspect]
     Route: 058
     Dates: start: 20110826, end: 20110826

REACTIONS (3)
  - NAUSEA [None]
  - HOT FLUSH [None]
  - DIZZINESS [None]
